FAERS Safety Report 16304045 (Version 1)
Quarter: 2019Q2

REPORT INFORMATION
  Report Type: Spontaneous
  Country: IT (occurrence: IT)
  Receive Date: 20190513
  Receipt Date: 20190513
  Transmission Date: 20190711
  Serious: Yes (Other)
  Sender: FDA-Public Use
  Company Number: IT-ACCORD-127132

PATIENT
  Age: 78 Year
  Sex: Male

DRUGS (5)
  1. RAMIPRIL. [Suspect]
     Active Substance: RAMIPRIL
     Indication: HYPERTENSION
     Route: 048
     Dates: start: 20180101, end: 20180221
  2. SOTALEX [Concomitant]
     Active Substance: SOTALOL
     Dosage: STRENGTH 80 MG
  3. LERCANIDIPINE [Concomitant]
     Active Substance: LERCANIDIPINE
  4. COUMADIN [Concomitant]
     Active Substance: WARFARIN SODIUM
  5. PAROXETINE. [Concomitant]
     Active Substance: PAROXETINE

REACTIONS (2)
  - Hypertensive crisis [Recovering/Resolving]
  - Chest pain [Recovering/Resolving]

NARRATIVE: CASE EVENT DATE: 20180221
